FAERS Safety Report 9366787 (Version 7)
Quarter: 2015Q2

REPORT INFORMATION
  Report Type: Report from Study
  Country: US (occurrence: US)
  Receive Date: 20130625
  Receipt Date: 20150629
  Transmission Date: 20150821
  Serious: Yes (Hospitalization, Other)
  Sender: FDA-Public Use
  Company Number: US-TEVA-415046USA

PATIENT
  Age: 66 Year
  Sex: Male
  Weight: 100.7 kg

DRUGS (25)
  1. AMBIEN CR [Concomitant]
     Active Substance: ZOLPIDEM TARTRATE
     Dates: start: 20130507
  2. LOSARTAN AND HYDROCHLOROTHIAZIDE [Concomitant]
     Active Substance: HYDROCHLOROTHIAZIDE\LOSARTAN POTASSIUM
     Dates: start: 20130516
  3. COMPAZINE [Concomitant]
     Active Substance: PROCHLORPERAZINE MALEATE
     Dates: start: 20130507
  4. FIDAXOMICIN BLINDED [Suspect]
     Active Substance: FIDAXOMICIN
     Indication: PROPHYLAXIS
     Dosage: 1 DOSAGE FORMS DAILY; UID/QD
     Route: 048
     Dates: start: 20130606
  5. ETOPOSIDE. [Concomitant]
     Active Substance: ETOPOSIDE
     Dates: start: 20130608, end: 20130611
  6. ACYCLOVIR. [Concomitant]
     Active Substance: ACYCLOVIR
     Dates: start: 20130606
  7. CYTARABINE. [Concomitant]
     Active Substance: CYTARABINE
     Dates: start: 20130608, end: 20130611
  8. LEVAQUIN [Concomitant]
     Active Substance: LEVOFLOXACIN
     Dates: start: 20130516
  9. DEXAMETHASONE. [Concomitant]
     Active Substance: DEXAMETHASONE
     Dates: start: 20130606, end: 20130612
  10. BENDAMUSTINE [Suspect]
     Active Substance: BENDAMUSTINE
     Indication: CHEMOTHERAPY
     Dosage: UID/QD
     Route: 042
     Dates: start: 20130606, end: 20130607
  11. URSODIOL. [Concomitant]
     Active Substance: URSODIOL
     Dates: start: 20130606
  12. NEUTRASAL [Concomitant]
     Active Substance: CALCIUM CHLORIDE\POTASSIUM CHLORIDE\SODIUM CHLORIDE
     Indication: PROPHYLAXIS
  13. VANCOMYCIN [Concomitant]
     Active Substance: VANCOMYCIN
     Dates: start: 20130527, end: 20130527
  14. CAPHOSOL [Concomitant]
     Dates: start: 20130607
  15. ULTRAM [Concomitant]
     Active Substance: TRAMADOL HYDROCHLORIDE
     Dates: start: 20130507
  16. ZOFRAN [Concomitant]
     Active Substance: ONDANSETRON HYDROCHLORIDE
     Dates: start: 20130507
  17. MELPHALAN [Concomitant]
     Active Substance: MELPHALAN
     Dates: start: 20130612, end: 20130612
  18. DOXAZOSIN [Concomitant]
     Active Substance: DOXAZOSIN\DOXAZOSIN MESYLATE
     Dates: start: 20130507
  19. LIPITOR [Concomitant]
     Active Substance: ATORVASTATIN CALCIUM
     Dates: start: 20130507
  20. DIFLUCAN [Concomitant]
     Active Substance: FLUCONAZOLE
     Dates: start: 20130606, end: 20130625
  21. NEXIUM [Concomitant]
     Active Substance: ESOMEPRAZOLE MAGNESIUM
     Dates: start: 20130507
  22. PROPANTHELINE [Concomitant]
     Active Substance: PROPANTHELINE
     Dates: start: 20130606, end: 20130612
  23. LORAZEPAM. [Concomitant]
     Active Substance: LORAZEPAM
     Dates: start: 20130606, end: 20130612
  24. CLARITIN [Concomitant]
     Active Substance: LORATADINE
     Dates: start: 20130507
  25. ONDANSETRON [Concomitant]
     Active Substance: ONDANSETRON
     Dates: start: 20130606, end: 20130612

REACTIONS (1)
  - Syncope [Recovered/Resolved]

NARRATIVE: CASE EVENT DATE: 20130610
